FAERS Safety Report 10745173 (Version 2)
Quarter: 2015Q2

REPORT INFORMATION
  Report Type: Spontaneous
  Country: US (occurrence: None)
  Receive Date: 20150120
  Receipt Date: 20150420
  Transmission Date: 20150821
  Serious: No
  Sender: FDA-Public Use
  Company Number: AEGR000909

PATIENT
  Age: 78 Year
  Sex: Female
  Weight: 86.2 kg

DRUGS (19)
  1. LEVOTHYROXINE (LEVOTHYROXINE SODIUM) [Concomitant]
  2. LISINOPRIL + HIDROCLOROTIAZIDA (HYDROCHLOROTHIACIDE, LINSIOPRIL) [Concomitant]
  3. OMEPRAZOLE (OMEPRAZOLE) [Concomitant]
     Active Substance: OMEPRAZOLE
  4. CITRACAL + D (CALCIUM CITRATE, ERGOCALCIFEROL) [Concomitant]
  5. SINGULAIR [Concomitant]
     Active Substance: MONTELUKAST SODIUM
  6. BABY ASPIRIN (ACETYSALICYLIC ACID) [Concomitant]
  7. FLONASE [Concomitant]
     Active Substance: FLUTICASONE PROPIONATE
  8. LANTUS [Concomitant]
     Active Substance: INSULIN GLARGINE
  9. MUCINEX (GUAIFENESIN) [Concomitant]
  10. VITAMIN E (TOCOPHERYL ACETATE) [Concomitant]
  11. GLIMEPIRIDE (GLIMEPIRIDE) [Concomitant]
     Active Substance: GLIMEPIRIDE
  12. ACTOS [Concomitant]
     Active Substance: PIOGLITAZONE HYDROCHLORIDE
  13. CLARITIN [Concomitant]
     Active Substance: LORATADINE
  14. FIBER (POLYCARBOPHIL CALCIUM) [Concomitant]
     Active Substance: CALCIUM POLYCARBOPHIL
  15. OMEGA 3 6 9 (OMEGA 9 FATTY ACIDS, OMEGA-3 FATTY ACIDS, OMEGA-6 FATTY ACIDS) [Concomitant]
  16. JUXTAPID [Suspect]
     Active Substance: LOMITAPIDE MESYLATE
     Route: 048
     Dates: start: 201302, end: 20141022
  17. MULTIVITAMIN (VITAMINS NOS) [Concomitant]
     Active Substance: VITAMINS
  18. VITAMIN D (COLECALCIFEROL) [Concomitant]
  19. ZETIA [Concomitant]
     Active Substance: EZETIMIBE

REACTIONS (4)
  - Off label use [None]
  - Hepatic enzyme increased [None]
  - Product used for unknown indication [None]
  - Low density lipoprotein increased [None]

NARRATIVE: CASE EVENT DATE: 201302
